FAERS Safety Report 15758100 (Version 3)
Quarter: 2019Q2

REPORT INFORMATION
  Report Type: Report from Study
  Country: US (occurrence: US)
  Receive Date: 20181225
  Receipt Date: 20190410
  Transmission Date: 20190711
  Serious: Yes (Other)
  Sender: FDA-Public Use
  Company Number: PHEH2018US053894

PATIENT
  Sex: Female

DRUGS (1)
  1. COSENTYX [Suspect]
     Active Substance: SECUKINUMAB
     Indication: PSORIASIS
     Dosage: 300 MG, QMO (ONE SINGLE DOSE)
     Route: 058

REACTIONS (7)
  - Lower respiratory tract congestion [Unknown]
  - Drug ineffective [Unknown]
  - Injection site swelling [Unknown]
  - Musculoskeletal pain [Unknown]
  - Psoriatic arthropathy [Unknown]
  - Visual impairment [Unknown]
  - Localised infection [Unknown]
